FAERS Safety Report 18004575 (Version 1)
Quarter: 2020Q3

REPORT INFORMATION
  Report Type: Spontaneous
  Country: US (occurrence: US)
  Receive Date: 20200709
  Receipt Date: 20200709
  Transmission Date: 20201103
  Serious: No
  Sender: FDA-Public Use
  Company Number: None

PATIENT

DRUGS (2)
  1. FOSPHENYTOIN FOSPHENYTOIN SODIUM [Suspect]
     Active Substance: FOSPHENYTOIN SODIUM
  2. FAMOTIDINE FAMOTIDINE [Suspect]
     Active Substance: FAMOTIDINE
     Route: 042

REACTIONS (2)
  - Circumstance or information capable of leading to medication error [None]
  - Medication error [None]
